FAERS Safety Report 9098585 (Version 1)
Quarter: 2013Q1

REPORT INFORMATION
  Report Type: Spontaneous
  Country: FR (occurrence: FR)
  Receive Date: 20130213
  Receipt Date: 20130213
  Transmission Date: 20140127
  Serious: Yes (Hospitalization)
  Sender: FDA-Public Use
  Company Number: FR-MERCK-1302FRA001036

PATIENT
  Age: 60 Year
  Sex: Female

DRUGS (2)
  1. JANUVIA [Suspect]
     Dosage: 100 MG, QD
     Route: 048
     Dates: start: 201001, end: 201106
  2. DAPSONE\FERROUS OXIDE [Suspect]
     Dosage: 100 MG, QD
     Route: 048
     Dates: start: 201103, end: 201106

REACTIONS (1)
  - Haemolytic anaemia [Not Recovered/Not Resolved]
